FAERS Safety Report 6571634-3 (Version None)
Quarter: 2010Q1

REPORT INFORMATION
  Report Type: 
  Country: None (occurrence: None)
  Receive Date: 20100205
  Receipt Date: 20100126
  Transmission Date: 20100710
  Serious: Yes (Other)
  Sender: FDA-Public Use
  Company Number: PHHY2009GB59791

PATIENT
  Sex: Male

DRUGS (6)
  1. CLOZARIL [Suspect]
     Dosage: 50 MG, QD
     Dates: start: 20091030
  2. CLOZARIL [Suspect]
     Dosage: 400 MG, QD
     Route: 048
  3. PROCYCLIDINE HYDROCHLORIDE 2MG TAB [Concomitant]
     Dosage: 5 MG, QD
  4. HALOPERIDOL [Concomitant]
     Dosage: 10 MG, BID
  5. HALOPERIDOL [Concomitant]
     Dosage: 10 MG, QD
  6. OMEPRAZOLE [Concomitant]
     Indication: DYSPEPSIA
     Dosage: 20 MG, QD

REACTIONS (4)
  - DYSPHEMIA [None]
  - EPILEPSY [None]
  - MUSCLE SPASMS [None]
  - TIC [None]
